FAERS Safety Report 12232229 (Version 1)
Quarter: 2016Q2

REPORT INFORMATION
  Report Type: Spontaneous
  Country: FR (occurrence: FR)
  Receive Date: 20160401
  Receipt Date: 20160401
  Transmission Date: 20160815
  Serious: Yes (Other)
  Sender: FDA-Public Use
  Company Number: FR-BAYER-2016-057728

PATIENT
  Age: 30 Year
  Sex: Female

DRUGS (3)
  1. IOMERON [Concomitant]
     Active Substance: IOMEPROL
     Indication: ANGIOPLASTY
     Dosage: 50 ML, ONCE
  2. MAGNESIUM SULFATE. [Concomitant]
     Active Substance: MAGNESIUM SULFATE
     Indication: PRE-ECLAMPSIA
     Route: 042
  3. ACETYLSALICYLIC ACID (} 100 MG) [Suspect]
     Active Substance: ASPIRIN
     Indication: THROMBOSIS PROPHYLAXIS
     Dosage: 160 MG, QD

REACTIONS (4)
  - Pre-eclampsia [Recovered/Resolved]
  - Post procedural haemorrhage [Recovered/Resolved]
  - Maternal exposure during pregnancy [None]
  - Premature delivery [None]
